FAERS Safety Report 7318738 (Version 15)
Quarter: 2016Q2

REPORT INFORMATION
  Report Type: Report from Study
  Country: RU (occurrence: RU)
  Receive Date: 20100312
  Receipt Date: 20160511
  Transmission Date: 20160815
  Serious: Yes (Death, Life-Threatening, Hospitalization)
  Sender: FDA-Public Use
  Company Number: PHHO2010RU03694

PATIENT
  Age: 67 Year
  Sex: Male
  Weight: 79.9 kg

DRUGS (19)
  1. ENALAPRIL [Suspect]
     Active Substance: ENALAPRIL
     Dosage: 10 MG, BID
     Route: 048
     Dates: start: 20100310, end: 20130116
  2. ALISKIREN [Suspect]
     Active Substance: ALISKIREN
     Dosage: 300 MG
     Route: 048
     Dates: start: 20130129
  3. ENALAPRIL [Suspect]
     Active Substance: ENALAPRIL
     Indication: CARDIAC FAILURE
     Dosage: RUN IN PHASE
     Route: 048
     Dates: start: 20091008
  4. ENALAPRIL [Suspect]
     Active Substance: ENALAPRIL
     Dosage: 10 MG, BID
     Route: 048
     Dates: start: 20091126
  5. ENALAPRIL [Suspect]
     Active Substance: ENALAPRIL
     Dosage: NO TREATMENT
     Route: 048
     Dates: start: 20100307, end: 20100309
  6. THROMBO ASS [Concomitant]
     Active Substance: ASPIRIN
     Indication: ANGINA PECTORIS
  7. NITROGLYCERINE [Suspect]
     Active Substance: NITROGLYCERIN
     Indication: CHEST PAIN
     Dosage: 1 DF (TABLET)
     Route: 060
     Dates: start: 20100306
  8. ALISKIREN [Suspect]
     Active Substance: ALISKIREN
     Dosage: 300 MG
     Route: 048
     Dates: start: 20100303, end: 20100306
  9. ALISKIREN [Suspect]
     Active Substance: ALISKIREN
     Dosage: 300 MG
     Route: 048
     Dates: start: 20100310, end: 20130116
  10. ENALAPRIL [Suspect]
     Active Substance: ENALAPRIL
     Dosage: 10 MG, BID
     Route: 048
     Dates: start: 20130129
  11. ALISKIREN [Suspect]
     Active Substance: ALISKIREN
     Indication: CARDIAC FAILURE
     Dosage: RUN IN PHASE
     Route: 048
     Dates: start: 20091111
  12. ALISKIREN [Suspect]
     Active Substance: ALISKIREN
     Dosage: 300 MG
     Route: 048
     Dates: start: 20091126
  13. ENALAPRIL [Suspect]
     Active Substance: ENALAPRIL
     Dosage: 10 MG, BID
     Route: 048
     Dates: start: 20100303, end: 20100306
  14. ISOSORBIDE DINITRATE. [Suspect]
     Active Substance: ISOSORBIDE DINITRATE
     Indication: ANGINA PECTORIS
     Route: 065
  15. THROMBO ASS [Concomitant]
     Active Substance: ASPIRIN
     Indication: MYOCARDIAL INFARCTION
     Dosage: 100 MG, QD
     Route: 048
     Dates: start: 20020814
  16. SIMVASTATIN. [Concomitant]
     Active Substance: SIMVASTATIN
     Indication: ANGINA PECTORIS
     Dosage: 20 MG, QD
     Route: 048
     Dates: start: 20090413
  17. METFORMIN [Concomitant]
     Active Substance: METFORMIN HYDROCHLORIDE
     Indication: TYPE 2 DIABETES MELLITUS
     Dosage: 500 MG, QD
     Route: 048
     Dates: start: 20080320
  18. ATORVASTATIN [Concomitant]
     Active Substance: ATORVASTATIN
     Indication: ANGINA PECTORIS
     Dosage: 20 MG, QD
     Route: 048
     Dates: start: 20111109
  19. ALISKIREN [Suspect]
     Active Substance: ALISKIREN
     Dosage: NO TREATMENT
     Route: 048
     Dates: start: 20100307, end: 20100309

REACTIONS (16)
  - Vertigo [Recovered/Resolved]
  - Myocardial ischaemia [Recovered/Resolved]
  - Hypotension [Recovered/Resolved]
  - Chest pain [Recovered/Resolved]
  - Right ventricular failure [Recovered/Resolved]
  - Disease progression [Recovered/Resolved]
  - Cold sweat [Recovered/Resolved]
  - Dizziness [Recovered/Resolved]
  - Angina unstable [Recovered/Resolved]
  - Chest pain [Recovered/Resolved]
  - Loss of consciousness [Recovered/Resolved]
  - Pulmonary congestion [Recovered/Resolved]
  - Ventricular extrasystoles [Recovered/Resolved]
  - Hepatic cancer [Fatal]
  - Cardiac failure chronic [Recovered/Resolved]
  - Angina unstable [Recovered/Resolved]

NARRATIVE: CASE EVENT DATE: 20100306
